FAERS Safety Report 9980785 (Version 1)
Quarter: 2014Q1

REPORT INFORMATION
  Report Type: Spontaneous
  Country: US (occurrence: None)
  Receive Date: 20140306
  Receipt Date: 20140306
  Transmission Date: 20141002
  Serious: Yes (Death, Life-Threatening)
  Sender: FDA-Public Use
  Company Number: None

PATIENT
  Age: 68 Year
  Sex: Male
  Weight: 55 kg

DRUGS (1)
  1. POTASSIUM CHLORIDE [Suspect]
     Indication: HYPOKALAEMIA
     Route: 042
     Dates: start: 20140121, end: 20140121

REACTIONS (6)
  - Unresponsive to stimuli [None]
  - Cardio-respiratory arrest [None]
  - Pulseless electrical activity [None]
  - Alkalosis [None]
  - Acidosis [None]
  - Hyperkalaemia [None]
